FAERS Safety Report 12643686 (Version 1)
Quarter: 2016Q3

REPORT INFORMATION
  Report Type: Spontaneous
  Country: NL (occurrence: NL)
  Receive Date: 20160811
  Receipt Date: 20160811
  Transmission Date: 20161109
  Serious: Yes (Death, Hospitalization, Other)
  Sender: FDA-Public Use
  Company Number: NL-ABBVIE-16P-114-1697091-00

PATIENT
  Age: 79 Year
  Sex: Male

DRUGS (4)
  1. ACENOCOUMAROL [Concomitant]
     Active Substance: ACENOCOUMAROL
     Indication: PRODUCT USED FOR UNKNOWN INDICATION
     Dosage: EXTRA INFOR: VV
  2. PANTOPRAZOLE [Concomitant]
     Active Substance: PANTOPRAZOLE SODIUM
     Indication: PRODUCT USED FOR UNKNOWN INDICATION
     Route: 048
  3. PRAVASTATIN. [Concomitant]
     Active Substance: PRAVASTATIN
     Indication: PRODUCT USED FOR UNKNOWN INDICATION
  4. LEUPROLIDE ACETATE. [Suspect]
     Active Substance: LEUPROLIDE ACETATE
     Indication: PROSTATE CANCER
     Dosage: 1 TIME PER WEEK 3 UNITS, EXTRA INFO: 1 TIME PER 3 MONTHS
     Route: 030
     Dates: start: 201509, end: 201606

REACTIONS (7)
  - Fatigue [Unknown]
  - Dyspnoea [Unknown]
  - Inflammation [Fatal]
  - Respiratory failure [Fatal]
  - Inflammation [Fatal]
  - Interstitial lung disease [Fatal]
  - Pyrexia [Fatal]

NARRATIVE: CASE EVENT DATE: 2015
